FAERS Safety Report 9040785 (Version 1)
Quarter: 2013Q1

REPORT INFORMATION
  Report Type: Report from Study
  Country: US (occurrence: US)
  Receive Date: 20130129
  Receipt Date: 20130129
  Transmission Date: 20140127
  Serious: Yes (Other)
  Sender: FDA-Public Use
  Company Number: US-ABBOTT-13P-163-1038825-00

PATIENT
  Sex: Female
  Weight: 98.06 kg

DRUGS (5)
  1. HUMIRA [Suspect]
     Indication: PSORIASIS
     Dates: end: 20120302
  2. HUMIRA [Suspect]
     Indication: PSORIATIC ARTHROPATHY
  3. SIMPONI [Suspect]
     Indication: PSORIASIS
     Dates: start: 20120408
  4. SIMPONI [Suspect]
     Indication: PSORIATIC ARTHROPATHY
  5. METHOTREXATE [Concomitant]
     Indication: PRODUCT USED FOR UNKNOWN INDICATION
     Dates: start: 20121118

REACTIONS (14)
  - Uterine haemorrhage [Recovered/Resolved]
  - Uterine disorder [Recovered/Resolved]
  - Uterine enlargement [Recovered/Resolved]
  - Pelvic pain [Recovered/Resolved]
  - Cough [Recovered/Resolved]
  - Rhinorrhoea [Recovered/Resolved]
  - Joint stiffness [Not Recovered/Not Resolved]
  - Drug dose omission [Unknown]
  - Nasopharyngitis [Recovered/Resolved]
  - Therapeutic response decreased [Not Recovered/Not Resolved]
  - Psoriasis [Not Recovered/Not Resolved]
  - Pain [Not Recovered/Not Resolved]
  - Pain [Not Recovered/Not Resolved]
  - Nasopharyngitis [Recovered/Resolved]
